FAERS Safety Report 10905307 (Version 1)
Quarter: 2015Q1

REPORT INFORMATION
  Report Type: Spontaneous
  Country: GB (occurrence: GB)
  Receive Date: 20150311
  Receipt Date: 20150311
  Transmission Date: 20150721
  Serious: Yes (Other)
  Sender: FDA-Public Use
  Company Number: PHFR2015GB001893

PATIENT
  Age: 16 Year
  Sex: Female

DRUGS (2)
  1. CLOZARIL [Suspect]
     Active Substance: CLOZAPINE
     Dosage: 12.5 MG,
     Route: 048
     Dates: start: 20150302
  2. CLOZARIL [Suspect]
     Active Substance: CLOZAPINE
     Indication: SCHIZOPHRENIA
     Dosage: UNK
     Route: 048
     Dates: start: 20150126, end: 20150222

REACTIONS (5)
  - Drug administered to patient of inappropriate age [Unknown]
  - Chest pain [Unknown]
  - Product use issue [Unknown]
  - Schizophrenia [Unknown]
  - Cardiac disorder [Unknown]

NARRATIVE: CASE EVENT DATE: 20150126
